FAERS Safety Report 8665256 (Version 2)
Quarter: 2012Q4

REPORT INFORMATION
  Report Type: 
  Country: VE (occurrence: VE)
  Receive Date: 20120716
  Receipt Date: 20121119
  Transmission Date: 20130627
  Serious: Yes (Death)
  Sender: FDA-Public Use
  Company Number: VE-ELI_LILLY_AND_COMPANY-VE201207003379

PATIENT
  Age: 80 Year
  Sex: Female

DRUGS (5)
  1. HUMALOG 25% LISPRO, 75% NPL [Suspect]
     Dosage: 32 u, each morning
     Dates: start: 20120509
  2. HUMALOG 25% LISPRO, 75% NPL [Suspect]
     Dosage: 32 u, each evening
     Dates: start: 20120509
  3. HUMALOG LISPRO [Suspect]
     Dosage: 5 u, qd
     Dates: start: 20120509
  4. HUMULIN 30% REGULAR, 70% NPH [Suspect]
     Dosage: 10 u, each morning
     Dates: start: 201206
  5. HUMULIN 30% REGULAR, 70% NPH [Suspect]
     Dosage: 10 u, each evening
     Dates: start: 201206

REACTIONS (3)
  - Renal failure chronic [Fatal]
  - Hypertensive crisis [Fatal]
  - Hyperglycaemia [Fatal]
